FAERS Safety Report 16523112 (Version 2)
Quarter: 2019Q3

REPORT INFORMATION
  Report Type: Report from Study
  Country: None (occurrence: US)
  Receive Date: 20190702
  Receipt Date: 20190716
  Transmission Date: 20191004
  Serious: Yes (Hospitalization)
  Sender: FDA-Public Use
  Company Number: US-ABBVIE-19K-163-2802250-00

PATIENT
  Age: 27 Year
  Sex: Male
  Weight: 49.94 kg

DRUGS (3)
  1. CANNABIS [Concomitant]
     Active Substance: CANNABIS SATIVA SUBSP. INDICA TOP
     Indication: GASTRIC DISORDER
  2. HUMIRA [Suspect]
     Active Substance: ADALIMUMAB
     Indication: CROHN^S DISEASE
     Dosage: HUMIRA STOP DATE-2012 OR 2013
     Route: 058
     Dates: end: 2012
  3. CANNABIS [Concomitant]
     Active Substance: CANNABIS SATIVA SUBSP. INDICA TOP
     Indication: ANXIETY

REACTIONS (8)
  - Ileostomy [Unknown]
  - Injection site pain [Recovered/Resolved]
  - Colostomy closure [Unknown]
  - Unevaluable event [Not Recovered/Not Resolved]
  - Colectomy [Unknown]
  - Ileostomy closure [Unknown]
  - Drug ineffective [Recovering/Resolving]
  - Crohn^s disease [Recovered/Resolved]

NARRATIVE: CASE EVENT DATE: 2017
